FAERS Safety Report 17015589 (Version 1)
Quarter: 2019Q4

REPORT INFORMATION
  Report Type: Spontaneous
  Country: US (occurrence: US)
  Receive Date: 20191111
  Receipt Date: 20191111
  Transmission Date: 20200122
  Serious: No
  Sender: FDA-Public Use
  Company Number: US-SCIEGEN PHARMACEUTICALS INC-2019SCISPO00337

PATIENT

DRUGS (1)
  1. BUPROPION HYDROCHLORIDE. [Suspect]
     Active Substance: BUPROPION HYDROCHLORIDE

REACTIONS (7)
  - Agitation [Unknown]
  - Drug ineffective [Unknown]
  - Mood swings [Unknown]
  - Product substitution issue [None]
  - Insomnia [Unknown]
  - Anxiety [Unknown]
  - Heart rate increased [Unknown]
